FAERS Safety Report 23541149 (Version 2)
Quarter: 2024Q2

REPORT INFORMATION
  Report Type: Spontaneous
  Country: US (occurrence: US)
  Receive Date: 20240219
  Receipt Date: 20240517
  Transmission Date: 20240716
  Serious: No
  Sender: FDA-Public Use
  Company Number: US-Stemline Therapeutics, Inc.-2024ST000220

PATIENT
  Age: 60 Year
  Sex: Female

DRUGS (2)
  1. ORSERDU [Suspect]
     Active Substance: ELACESTRANT
     Indication: Product used for unknown indication
     Route: 048
     Dates: start: 20231110
  2. EVEROLIMUS [Concomitant]
     Active Substance: EVEROLIMUS
     Indication: Breast cancer female
     Dosage: 10MG BY MOUTH DAILY
     Route: 048
     Dates: start: 20240207

REACTIONS (5)
  - Pain [Unknown]
  - Aphthous ulcer [Unknown]
  - Bone pain [Unknown]
  - Disease progression [Unknown]
  - Drug ineffective [Unknown]
